FAERS Safety Report 5337824-2 (Version None)
Quarter: 2007Q2

REPORT INFORMATION
  Report Type: 
  Country: None (occurrence: None)
  Receive Date: 20070308
  Receipt Date: 20061228
  Transmission Date: 20071010
  Serious: No
  Sender: FDA-Public Use
  Company Number: 2006-BP-15146BPH

PATIENT
  Age: 84 Year
  Sex: Female

DRUGS (3)
  1. SPIRIVA [Suspect]
     Indication: BRONCHITIS CHRONIC
     Dosage: 18 MCG (18 MCG, 1 PUFF QD), IH
     Route: 055
     Dates: start: 20061120, end: 20061223
  2. PROVENTIL (SALBUTAMOL) [Concomitant]
  3. DIOVAN HCT (CO-DIOVAN) [Concomitant]

REACTIONS (1)
  - VISUAL ACUITY REDUCED [None]
